FAERS Safety Report 9459181 (Version 1)
Quarter: 2013Q3

REPORT INFORMATION
  Report Type: Spontaneous
  Country: US (occurrence: US)
  Receive Date: 20130814
  Receipt Date: 20130814
  Transmission Date: 20140515
  Serious: No
  Sender: FDA-Public Use
  Company Number: US-009507513-1308USA002620

PATIENT
  Sex: Female

DRUGS (1)
  1. NUVARING [Suspect]
     Dosage: TAKE AS DIRECTED
     Route: 067
     Dates: start: 20120806

REACTIONS (3)
  - Inappropriate schedule of drug administration [Unknown]
  - Device breakage [Unknown]
  - No adverse event [Unknown]
